FAERS Safety Report 5615887-4 (Version None)
Quarter: 2008Q1

REPORT INFORMATION
  Report Type: 
  Country: None (occurrence: None)
  Receive Date: 20080206
  Receipt Date: 20080124
  Transmission Date: 20080703
  Serious: Yes (Other)
  Sender: FDA-Public Use
  Company Number: GB-RANBAXY-2008RR-12798

PATIENT

DRUGS (3)
  1. RISPERIDONE [Suspect]
     Dosage: 2.5 MG, UNK
     Route: 048
     Dates: start: 20080101
  2. RISPERIDONE [Suspect]
     Dosage: 3 MG, UNK
     Route: 048
  3. RISPERIDONE [Suspect]
     Dosage: 5 MG, UNK
     Route: 048

REACTIONS (1)
  - SEDATION [None]
